FAERS Safety Report 9358025 (Version 1)
Quarter: 2013Q3

REPORT INFORMATION
  Report Type: Spontaneous
  Country: US (occurrence: None)
  Receive Date: 20130619
  Receipt Date: 20130619
  Transmission Date: 20140515
  Serious: Yes (Other)
  Sender: FDA-Public Use
  Company Number: None

PATIENT
  Age: 26 Year
  Sex: Male
  Weight: 63.7 kg

DRUGS (18)
  1. NUCYNTA ER [Suspect]
     Indication: PAIN
     Route: 048
     Dates: start: 20130314, end: 20130413
  2. NUCYNTA ER [Suspect]
     Indication: SPONDYLOARTHROPATHY
     Route: 048
     Dates: start: 20130314, end: 20130413
  3. ADVAIR [Suspect]
  4. ALBUTEROL [Concomitant]
  5. ASPIRIN [Concomitant]
  6. CRESTOR [Concomitant]
  7. FOLIC ACID [Concomitant]
  8. HYDROXYCHLOROQUINE [Concomitant]
  9. INSULIN [Concomitant]
  10. IPRATROPIUM [Concomitant]
  11. LAMOTRIGINE [Concomitant]
  12. LEVOTHYROXINE [Concomitant]
  13. LISINOPRIL [Concomitant]
  14. LORAZEPAM [Concomitant]
  15. MONTELUKAST [Concomitant]
  16. NEBIVOLOL [Concomitant]
  17. NITROGLYCERIN [Concomitant]
  18. OMNIPOD INSULIN PUMP [Suspect]

REACTIONS (5)
  - Palpitations [None]
  - Tremor [None]
  - Insomnia [None]
  - Supraventricular tachycardia [None]
  - Condition aggravated [None]
